FAERS Safety Report 7209560-9 (Version None)
Quarter: 2011Q1

REPORT INFORMATION
  Report Type: 
  Country: None (occurrence: None)
  Receive Date: 20110103
  Receipt Date: 20110103
  Transmission Date: 20110831
  Serious: Yes (Hospitalization)
  Sender: FDA-Public Use
  Company Number: None

PATIENT
  Age: 89 Year
  Sex: Male
  Weight: 65 kg

DRUGS (1)
  1. WARFARIN SODIUM [Suspect]
     Dates: start: 20101012

REACTIONS (4)
  - MUSCLE HAEMORRHAGE [None]
  - FALL [None]
  - INTERNATIONAL NORMALISED RATIO INCREASED [None]
  - HAEMATOMA [None]
